FAERS Safety Report 4648063-2 (Version None)
Quarter: 2005Q2

REPORT INFORMATION
  Report Type: 
  Country: None (occurrence: None)
  Receive Date: 20050426
  Receipt Date: 20050418
  Transmission Date: 20051028
  Serious: Yes (Death)
  Sender: FDA-Public Use
  Company Number: 163-20785-05030611

PATIENT
  Age: 67 Year
  Sex: Female

DRUGS (1)
  1. THALOMID [Suspect]
     Indication: MULTIPLE MYELOMA
     Dosage: 100 MG, DAILY, ORAL
     Route: 048
     Dates: start: 20040508, end: 20050309

REACTIONS (3)
  - CARDIO-RESPIRATORY ARREST [None]
  - CORONARY ARTERY ATHEROSCLEROSIS [None]
  - RENAL FAILURE CHRONIC [None]
